FAERS Safety Report 5269955-X (Version None)
Quarter: 2007Q1

REPORT INFORMATION
  Report Type: 
  Country: None (occurrence: None)
  Receive Date: 20070314
  Receipt Date: 20070227
  Transmission Date: 20070707
  Serious: Yes (Hospitalization)
  Sender: FDA-Public Use
  Company Number: 153739ISR

PATIENT
  Sex: Male

DRUGS (3)
  1. TRIMETHOPRIM [Suspect]
     Indication: URINARY TRACT INFECTION
     Dosage: 1000 MG (200 MG- 5 IN 1 D)
     Dates: start: 20030101, end: 20030101
  2. METHOTREXATE [Suspect]
     Dates: start: 20021001
  3. FOLIC ACID [Suspect]
     Dosage: (5 MG)
     Dates: end: 20021001

REACTIONS (4)
  - BONE MARROW FAILURE [None]
  - DRUG INTERACTION [None]
  - HAEMOLYTIC ANAEMIA [None]
  - METASTASIS [None]
